FAERS Safety Report 22524891 (Version 1)
Quarter: 2023Q2

REPORT INFORMATION
  Report Type: Report from Study
  Country: US (occurrence: US)
  Receive Date: 20230606
  Receipt Date: 20230606
  Transmission Date: 20230722
  Serious: Yes (Hospitalization)
  Sender: FDA-Public Use
  Company Number: US-ABBVIE-5275932

PATIENT
  Age: 78 Year
  Sex: Female

DRUGS (1)
  1. HUMIRA [Suspect]
     Active Substance: ADALIMUMAB
     Indication: Crohn^s disease
     Dosage: PASSING OUT AND FAINTED WHEN WALKING CESSATION SHOULD BE 2023
     Route: 058
     Dates: start: 20220928

REACTIONS (5)
  - Loss of consciousness [Recovered/Resolved]
  - Joint stiffness [Recovering/Resolving]
  - Loss of consciousness [Unknown]
  - Pain in extremity [Recovering/Resolving]
  - Arthralgia [Recovering/Resolving]

NARRATIVE: CASE EVENT DATE: 20230101
